FAERS Safety Report 9823389 (Version 2)
Quarter: 2014Q1

REPORT INFORMATION
  Report Type: Spontaneous
  Country: US (occurrence: US)
  Receive Date: 20140116
  Receipt Date: 20140116
  Transmission Date: 20141002
  Serious: No
  Sender: FDA-Public Use
  Company Number: US-GILEAD-2010-0034618

PATIENT
  Age: 64 Year
  Sex: Female

DRUGS (2)
  1. LETAIRIS [Suspect]
     Indication: PULMONARY HYPERTENSION
     Route: 048
     Dates: start: 20101215
  2. LETAIRIS [Suspect]
     Indication: PULMONARY FIBROSIS
     Route: 048

REACTIONS (2)
  - Barium swallow [Not Recovered/Not Resolved]
  - Dyspnoea exertional [Not Recovered/Not Resolved]
